FAERS Safety Report 26082682 (Version 1)
Quarter: 2025Q4

REPORT INFORMATION
  Report Type: Spontaneous
  Country: US (occurrence: None)
  Receive Date: 20251122
  Receipt Date: 20251122
  Transmission Date: 20260118
  Serious: Yes (Other)
  Sender: FDA-CTU
  Company Number: None

PATIENT
  Sex: Female

DRUGS (3)
  1. PULMOZYME [Suspect]
     Active Substance: DORNASE ALFA
     Indication: Cystic fibrosis
     Dosage: INHALE 2.5 ML (2.5 MG TOTAL) BY NEBULIZATION ONCE DAILY. AROUND 5/5 DAYS A WEEK
     Route: 055
     Dates: start: 20150421
  2. PULMOZYME SOL 1MG/ML [Concomitant]
  3. TOBRAMYCIN NEB 300/5ML [Concomitant]

REACTIONS (2)
  - Dyspnoea [None]
  - Sleep disorder [None]
